FAERS Safety Report 20487510 (Version 2)
Quarter: 2022Q2

REPORT INFORMATION
  Report Type: Spontaneous
  Country: US (occurrence: US)
  Receive Date: 20220218
  Receipt Date: 20220503
  Transmission Date: 20220721
  Serious: No
  Sender: FDA-Public Use
  Company Number: US-AMGEN-USASP2022021895

PATIENT
  Age: 66 Year
  Sex: Female

DRUGS (3)
  1. PROLIA [Suspect]
     Active Substance: DENOSUMAB
     Indication: Osteoporosis
     Dosage: 60 MILLIGRAM/ML, Q6MO
     Route: 058
     Dates: start: 20220202
  2. PROLIA [Suspect]
     Active Substance: DENOSUMAB
     Indication: Bone density abnormal
  3. PREDNISONE [Concomitant]
     Active Substance: PREDNISONE
     Indication: Back disorder
     Dosage: UNK

REACTIONS (3)
  - Feeling abnormal [Unknown]
  - Paraesthesia oral [Unknown]
  - Lymphadenopathy [Unknown]

NARRATIVE: CASE EVENT DATE: 20220205
